FAERS Safety Report 24969765 (Version 1)
Quarter: 2025Q1

REPORT INFORMATION
  Report Type: Spontaneous
  Country: US (occurrence: US)
  Receive Date: 20250214
  Receipt Date: 20250214
  Transmission Date: 20250409
  Serious: Yes (Death, Hospitalization)
  Sender: ASTELLAS
  Company Number: US-ASTELLAS-2025-AER-008857

PATIENT
  Sex: Male

DRUGS (1)
  1. PADCEV [Suspect]
     Active Substance: ENFORTUMAB VEDOTIN-EJFV
     Indication: Product used for unknown indication
     Route: 065

REACTIONS (3)
  - Myocarditis [Fatal]
  - Myasthenia gravis [Fatal]
  - Injection site extravasation [Unknown]

NARRATIVE: CASE EVENT DATE: 20250101
